FAERS Safety Report 10969488 (Version 1)
Quarter: 2015Q1

REPORT INFORMATION
  Report Type: Spontaneous
  Country: US (occurrence: None)
  Receive Date: 20150226
  Receipt Date: 20150226
  Transmission Date: 20150721
  Serious: No
  Sender: FDA-Public Use
  Company Number: TPA2009A01472

PATIENT
  Age: 81 Year
  Sex: Male
  Weight: 68.04 kg

DRUGS (14)
  1. RANEXA (RANOLAZINE) [Concomitant]
  2. GLUCOSAMINE CHONDROITIN (GLUCOSAMINE, CHONDROITIN SULFATE) [Concomitant]
  3. NITROGLYCERIN (GLYCERYL TRINITRATE) [Concomitant]
     Active Substance: NITROGLYCERIN
  4. SAW PALMETTO (SERENOA REPENS) [Concomitant]
     Active Substance: SAW PALMETTO
  5. SELENIUM [Concomitant]
     Active Substance: SELENIUM
  6. MULTIVITAMIN (ERGOCALCIFEROL, ASCORBIC ACID, FOLIC ACID, THIAMINE HYDROCHLORIDE, RETINOL, RIBOFLAVIN, NICOTINAMIDE, PANTHENOL) [Concomitant]
  7. PLAVIX [Concomitant]
     Active Substance: CLOPIDOGREL BISULFATE
  8. ATENOL [Concomitant]
     Active Substance: ATENOLOL
  9. ULORIC [Suspect]
     Active Substance: FEBUXOSTAT
     Indication: GOUTY ARTHRITIS
     Route: 048
     Dates: start: 20090603
  10. CARDURA (DOXAZOSIN) [Concomitant]
  11. ISOOSORBIDE MONONITRATE ER [Concomitant]
  12. AVODART (DUTASTERIDE) [Concomitant]
  13. COLCHICINE. [Concomitant]
     Active Substance: COLCHICINE
  14. OMEGA 3 FISH OIL [Concomitant]
     Active Substance: FISH OIL\OMEGA-3 FATTY ACIDS

REACTIONS (2)
  - Urine output decreased [None]
  - Feeling abnormal [None]

NARRATIVE: CASE EVENT DATE: 200906
